FAERS Safety Report 23557825 (Version 2)
Quarter: 2024Q2

REPORT INFORMATION
  Report Type: Other
  Country: JP (occurrence: None)
  Receive Date: 20240223
  Receipt Date: 20240606
  Transmission Date: 20240716
  Serious: Yes (Hospitalization, Other)
  Sender: FDA-Public Use
  Company Number: JP-ROCHE-3514843

PATIENT

DRUGS (1)
  1. BEVACIZUMAB [Suspect]
     Active Substance: BEVACIZUMAB
     Indication: Non-small cell lung cancer
     Route: 065

REACTIONS (6)
  - Cardiovascular disorder [Unknown]
  - Embolism venous [Unknown]
  - Cerebrovascular disorder [Unknown]
  - Haemorrhage [Unknown]
  - Gastrointestinal perforation [Unknown]
  - Proteinuria [Unknown]
